FAERS Safety Report 4332636-0 (Version None)
Quarter: 2004Q2

REPORT INFORMATION
  Report Type: 
  Country: None (occurrence: None)
  Receive Date: 20040401
  Receipt Date: 20040316
  Transmission Date: 20050107
  Serious: Yes (Other)
  Sender: FDA-Public Use
  Company Number: 8005860

PATIENT
  Age: 32 Year
  Sex: Female
  Weight: 70 kg

DRUGS (4)
  1. KEPPRA [Suspect]
     Indication: EPILEPSY
     Dosage: 500 MG 2/D PO
     Route: 048
     Dates: start: 20030601
  2. CARBAMAZEPINE [Suspect]
     Indication: EPILEPSY
     Dosage: 1000 MG PO
     Route: 048
     Dates: start: 20030801
  3. REBIF [Concomitant]
  4. LIORESAL [Concomitant]

REACTIONS (4)
  - CAESAREAN SECTION [None]
  - COMPLICATIONS OF MATERNAL EXPOSURE TO THERAPEUTIC DRUGS [None]
  - PREMATURE BABY [None]
  - UNINTENDED PREGNANCY [None]
